FAERS Safety Report 7751283-1 (Version None)
Quarter: 2011Q3

REPORT INFORMATION
  Report Type: 
  Country: None (occurrence: None)
  Receive Date: 20110914
  Receipt Date: 20110907
  Transmission Date: 20111222
  Serious: Yes (Hospitalization)
  Sender: FDA-Public Use
  Company Number: US-ABBOTT-11P-163-0852925-00

PATIENT
  Age: 38 Year
  Sex: Female

DRUGS (1)
  1. HUMIRA [Suspect]
     Indication: CROHN'S DISEASE
     Dosage: LOADING DOSE
     Dates: start: 20110713, end: 20110901

REACTIONS (7)
  - INTESTINAL OBSTRUCTION [None]
  - ABDOMINAL PAIN [None]
  - RASH PAPULAR [None]
  - NAUSEA [None]
  - INTESTINAL STENOSIS [None]
  - RASH PRURITIC [None]
  - BOWEL MOVEMENT IRREGULARITY [None]
